FAERS Safety Report 7016107-9 (Version None)
Quarter: 2010Q3

REPORT INFORMATION
  Report Type: 
  Country: None (occurrence: None)
  Receive Date: 20100927
  Receipt Date: 20100914
  Transmission Date: 20110219
  Serious: Yes (Hospitalization)
  Sender: FDA-Public Use
  Company Number: TR-WATSON-2010-12576

PATIENT
  Age: 18 Year
  Sex: Female

DRUGS (2)
  1. ERGOTAMINE [Suspect]
     Indication: MIGRAINE
     Dosage: UNK
  2. CLARITHROMYCIN [Suspect]
     Indication: UPPER RESPIRATORY TRACT INFECTION
     Dosage: UNK

REACTIONS (3)
  - DRUG INTERACTION [None]
  - ERGOT POISONING [None]
  - PERIPHERAL ISCHAEMIA [None]
